FAERS Safety Report 21831671 (Version 2)
Quarter: 2023Q1

REPORT INFORMATION
  Report Type: Spontaneous
  Country: BR (occurrence: BR)
  Receive Date: 20230106
  Receipt Date: 20230124
  Transmission Date: 20230418
  Serious: Yes (Hospitalization, Other)
  Sender: FDA-Public Use
  Company Number: BR-PFIZER INC-202300004754

PATIENT
  Age: 59 Year
  Sex: Female

DRUGS (1)
  1. INFLIXIMAB [Suspect]
     Active Substance: INFLIXIMAB
     Dosage: 200 MG, CYCLIC (8/8 WEEKS)
     Route: 042
     Dates: start: 20221108, end: 20221108

REACTIONS (8)
  - Respiratory distress [Unknown]
  - Malaise [Recovered/Resolved]
  - Nausea [Recovered/Resolved]
  - Back pain [Unknown]
  - Vomiting [Unknown]
  - Headache [Unknown]
  - Tachycardia [Unknown]
  - Hyperaemia [Unknown]

NARRATIVE: CASE EVENT DATE: 20221108
